FAERS Safety Report 7967546-0 (Version None)
Quarter: 2011Q4

REPORT INFORMATION
  Report Type: 
  Country: None (occurrence: None)
  Receive Date: 20111209
  Receipt Date: 20111129
  Transmission Date: 20120403
  Serious: Yes (Hospitalization)
  Sender: FDA-Public Use
  Company Number: US-JNJFOC-20061000632

PATIENT
  Sex: Male
  Weight: 108.2 kg

DRUGS (4)
  1. REMICADE [Suspect]
     Indication: RHEUMATOID ARTHRITIS
     Route: 042
     Dates: start: 20060518
  2. REMICADE [Suspect]
     Route: 042
     Dates: start: 20060711
  3. METHOTREXATE [Concomitant]
     Indication: RHEUMATOID ARTHRITIS
  4. REMICADE [Suspect]
     Route: 042
     Dates: start: 20060905

REACTIONS (1)
  - PNEUMONIA LEGIONELLA [None]
